FAERS Safety Report 8338395-9 (Version None)
Quarter: 2012Q2

REPORT INFORMATION
  Report Type: 
  Country: None (occurrence: None)
  Receive Date: 20120504
  Receipt Date: 20120425
  Transmission Date: 20120825
  Serious: Yes (Other)
  Sender: FDA-Public Use
  Company Number: VE-ROCHE-1063319

PATIENT
  Sex: Male
  Weight: 69 kg

DRUGS (1)
  1. ISOTRETINOIN [Suspect]
     Indication: ACNE
     Route: 048
     Dates: start: 20110701

REACTIONS (6)
  - DIARRHOEA HAEMORRHAGIC [None]
  - TRANSAMINASES ABNORMAL [None]
  - DIZZINESS [None]
  - ANAL FISSURE [None]
  - SWELLING [None]
  - EYELID OEDEMA [None]
